FAERS Safety Report 17414034 (Version 1)
Quarter: 2020Q1

REPORT INFORMATION
  Report Type: Spontaneous
  Country: US (occurrence: US)
  Receive Date: 20200213
  Receipt Date: 20200213
  Transmission Date: 20200409
  Serious: Yes (Death)
  Sender: FDA-Public Use
  Company Number: NVSC2020US038729

PATIENT
  Age: 72 Year
  Sex: Female

DRUGS (1)
  1. VOTRIENT [Suspect]
     Active Substance: PAZOPANIB HYDROCHLORIDE
     Indication: ENDOMETRIAL CANCER
     Dosage: 800 MG, QD (TABLET)
     Route: 048
     Dates: start: 20190829

REACTIONS (1)
  - Death [Fatal]

NARRATIVE: CASE EVENT DATE: 20200123
